FAERS Safety Report 14073711 (Version 1)
Quarter: 2017Q4

REPORT INFORMATION
  Report Type: Spontaneous
  Country: US (occurrence: None)
  Receive Date: 20171011
  Receipt Date: 20171011
  Transmission Date: 20180321
  Serious: Yes (Other)
  Sender: FDA-Public Use
  Company Number: None

PATIENT
  Sex: Male
  Weight: 113.85 kg

DRUGS (5)
  1. RISPERDAL [Suspect]
     Active Substance: RISPERIDONE
     Indication: PARANOIA
     Dosage: N/A N/A MOUTH, INJECTION
     Route: 048
     Dates: start: 20060830, end: 20130206
  2. HALIPARIDOL [Concomitant]
  3. RISPERDAL [Suspect]
     Active Substance: RISPERIDONE
     Indication: DEPRESSION
     Dosage: N/A N/A MOUTH, INJECTION
     Route: 048
     Dates: start: 20060830, end: 20130206
  4. BRUPROPRION [Concomitant]
  5. LISINOPRIL. [Concomitant]
     Active Substance: LISINOPRIL

REACTIONS (2)
  - Breast enlargement [None]
  - Chest pain [None]
